FAERS Safety Report 16989023 (Version 1)
Quarter: 2019Q4

REPORT INFORMATION
  Report Type: Report from Study
  Country: BR (occurrence: BR)
  Receive Date: 20191104
  Receipt Date: 20191104
  Transmission Date: 20200122
  Serious: Yes (Other)
  Sender: FDA-Public Use
  Company Number: BR-UCBSA-2019045477

PATIENT
  Sex: Female
  Weight: 70 kg

DRUGS (6)
  1. METOTREXATO [METHOTREXATE] [Concomitant]
     Active Substance: METHOTREXATE
     Indication: RHEUMATOID ARTHRITIS
     Dosage: 0.8 GRAM, WEEKLY (QW)
     Route: 058
     Dates: start: 2016
  2. ACICLOVIR [Concomitant]
     Active Substance: ACYCLOVIR
     Indication: VAGINAL INFECTION
     Dosage: 1 DOSAGE FORM, ONCE DAILY (QD)
     Route: 048
     Dates: start: 201905, end: 201908
  3. SINVASTATINA [Concomitant]
     Active Substance: SIMVASTATIN
     Indication: BLOOD CHOLESTEROL
     Dosage: 1 DOSAGE FORM, ONCE DAILY (QD)
     Route: 048
     Dates: start: 201906
  4. ACICLOVIR [Concomitant]
     Active Substance: ACYCLOVIR
     Indication: VAGINAL INFECTION
     Dosage: UNK, 3X/DAY (TID)
     Dates: start: 201905, end: 201908
  5. CERTOLIZUMAB PEGOL RA [Suspect]
     Active Substance: CERTOLIZUMAB PEGOL
     Indication: RHEUMATOID ARTHRITIS
     Dosage: 400 MILLIGRAM, EV 2 WEEKS(QOW)
     Route: 058
     Dates: start: 20180612
  6. FOLIC ACID. [Concomitant]
     Active Substance: FOLIC ACID
     Indication: RHEUMATOID ARTHRITIS
     Dosage: 2 DOSAGE FORM, WEEKLY (QW)
     Route: 048
     Dates: start: 2016

REACTIONS (2)
  - Vaginal discharge [Not Recovered/Not Resolved]
  - Genital herpes [Not Recovered/Not Resolved]

NARRATIVE: CASE EVENT DATE: 2018
